FAERS Safety Report 9053086 (Version 1)
Quarter: 2013Q1

REPORT INFORMATION
  Report Type: Spontaneous
  Country: US (occurrence: US)
  Receive Date: 20130208
  Receipt Date: 20130208
  Transmission Date: 20140127
  Serious: No
  Sender: FDA-Public Use
  Company Number: US-BIOGENIDEC-2013BI010245

PATIENT
  Age: 54 Year
  Sex: Male

DRUGS (11)
  1. TYSABRI [Suspect]
     Indication: MULTIPLE SCLEROSIS
     Route: 042
     Dates: start: 20120227
  2. ADVIL [Concomitant]
     Indication: PREMEDICATION
  3. BACLOFEN [Concomitant]
     Indication: WEIGHT DECREASED
  4. BACLOFEN [Concomitant]
     Indication: VOMITING
  5. BACLOFEN [Concomitant]
     Indication: CONVULSION
  6. BACLOFEN [Concomitant]
     Indication: PYREXIA
  7. GABAPENTIN [Concomitant]
     Indication: WEIGHT DECREASED
  8. GABAPENTIN [Concomitant]
     Indication: VOMITING
  9. GABAPENTIN [Concomitant]
     Indication: CONVULSION
  10. GABAPENTIN [Concomitant]
     Indication: PYREXIA
  11. MARINOL [Concomitant]
     Indication: DECREASED APPETITE

REACTIONS (4)
  - Central nervous system lesion [Not Recovered/Not Resolved]
  - Nausea [Recovered/Resolved]
  - Fatigue [Recovered/Resolved]
  - Multiple sclerosis relapse [Not Recovered/Not Resolved]
